FAERS Safety Report 17910968 (Version 2)
Quarter: 2025Q3

REPORT INFORMATION
  Report Type: Spontaneous
  Country: EU (occurrence: EU)
  Receive Date: 20200618
  Receipt Date: 20250826
  Transmission Date: 20251020
  Serious: Yes (Other)
  Sender: AUROBINDO
  Company Number: EU-UCBSA-2020021303

PATIENT
  Age: 84 Year
  Sex: Female

DRUGS (1)
  1. LEVETIRACETAM [Suspect]
     Active Substance: LEVETIRACETAM
     Indication: Epilepsy
     Route: 065

REACTIONS (4)
  - Supraventricular tachycardia [Unknown]
  - Orthostatic hypotension [Unknown]
  - Carotid arteriosclerosis [Unknown]
  - Injury [Unknown]
